FAERS Safety Report 5823006-4 (Version None)
Quarter: 2008Q3

REPORT INFORMATION
  Report Type: 
  Country: None (occurrence: None)
  Receive Date: 20080725
  Receipt Date: 20080721
  Transmission Date: 20090109
  Serious: Yes (Other)
  Sender: FDA-Public Use
  Company Number: B0529894A

PATIENT
  Age: 47 Year
  Sex: Male

DRUGS (4)
  1. SERETIDE [Suspect]
     Dosage: 2PUFF THREE TIMES PER DAY
     Route: 055
     Dates: start: 20040101
  2. VENTOLIN [Suspect]
     Dosage: 100MCG AS REQUIRED
     Route: 055
  3. ATROVENT [Concomitant]
  4. FLIXOTIDE [Concomitant]

REACTIONS (2)
  - ASTHMA [None]
  - DYSPNOEA [None]
